FAERS Safety Report 9276412 (Version 1)
Quarter: 2013Q2

REPORT INFORMATION
  Report Type: Spontaneous
  Country: US (occurrence: US)
  Receive Date: 20130507
  Receipt Date: 20130507
  Transmission Date: 20140414
  Serious: Yes (Other)
  Sender: FDA-Public Use
  Company Number: US-009507513-1305USA002716

PATIENT
  Age: 15 Year
  Sex: Male

DRUGS (3)
  1. TIMOLOL MALEATE [Suspect]
     Indication: INTRAOCULAR PRESSURE INCREASED
     Dosage: 1 GTT, QD EVERY MORNING
     Route: 047
     Dates: start: 201212
  2. TRAVATAN [Concomitant]
  3. TRUSOPT [Concomitant]

REACTIONS (1)
  - Intraocular pressure increased [Unknown]
